FAERS Safety Report 5692486-X (Version None)
Quarter: 2008Q2

REPORT INFORMATION
  Report Type: 
  Country: None (occurrence: None)
  Receive Date: 20080328
  Receipt Date: 20080128
  Transmission Date: 20081010
  Serious: No
  Sender: FDA-Public Use
  Company Number: US-WYE-H02346008

PATIENT
  Age: 78 Year
  Sex: Male

DRUGS (2)
  1. TORISEL [Suspect]
     Indication: RENAL CELL CARCINOMA
     Dosage: 20 MG (FREQUENCY NOT PROVIDED), INTRAVENOUS : INTRAVENOUS
     Route: 042
     Dates: start: 20071107
  2. LOPID [Concomitant]

REACTIONS (1)
  - BLOOD CREATININE INCREASED [None]
